FAERS Safety Report 24940796 (Version 1)
Quarter: 2025Q1

REPORT INFORMATION
  Report Type: Spontaneous
  Country: US (occurrence: US)
  Receive Date: 20250207
  Receipt Date: 20250207
  Transmission Date: 20250408
  Serious: No
  Sender: DR REDDYS
  Company Number: US-DRL-USA-USA/2025/01/001321

PATIENT
  Sex: Male

DRUGS (1)
  1. FLUOROURACIL [Suspect]
     Active Substance: FLUOROURACIL
     Indication: Precancerous condition
     Route: 065
     Dates: start: 20250105

REACTIONS (1)
  - Taste disorder [Unknown]
